FAERS Safety Report 4806077-3 (Version None)
Quarter: 2005Q4

REPORT INFORMATION
  Report Type: 
  Country: None (occurrence: None)
  Receive Date: 20051021
  Receipt Date: 20051007
  Transmission Date: 20060501
  Serious: Yes (Other)
  Sender: FDA-Public Use
  Company Number: US-ROCHE-420665

PATIENT
  Age: 54 Year
  Sex: Male
  Weight: 98 kg

DRUGS (4)
  1. PEGASYS [Suspect]
     Indication: HEPATITIS C
     Dosage: STRENGTH REPORTED AS 180 MCG/0.5 ML
     Route: 058
     Dates: start: 20050915
  2. COPEGUS [Suspect]
     Indication: HEPATITIS C
     Route: 048
     Dates: start: 20050915
  3. LOTREL [Concomitant]
     Indication: HYPERTENSION
     Route: 048
  4. ANTIDEPRESSANTS [Concomitant]
     Indication: DEPRESSION
     Route: 048

REACTIONS (4)
  - HAEMATURIA [None]
  - HAEMORRHAGE URINARY TRACT [None]
  - NEPHROLITHIASIS [None]
  - SUICIDAL IDEATION [None]
